FAERS Safety Report 21780920 (Version 1)
Quarter: 2022Q4

REPORT INFORMATION
  Report Type: Spontaneous
  Country: US (occurrence: US)
  Receive Date: 20221227
  Receipt Date: 20221227
  Transmission Date: 20230113
  Serious: No
  Sender: FDA-Public Use
  Company Number: US-TOLMAR, INC.-22US037890

PATIENT
  Age: 26 Year
  Sex: Male

DRUGS (2)
  1. KETOCONAZOLE [Suspect]
     Active Substance: KETOCONAZOLE
     Indication: Alopecia
     Dosage: UNK
     Route: 003
  2. UNSPECIFIED INGREDIENT [Concomitant]
     Active Substance: UNSPECIFIED INGREDIENT
     Indication: Alopecia
     Dosage: UNK, QD
     Route: 048

REACTIONS (3)
  - Hypersensitivity [Unknown]
  - Rash [Unknown]
  - Off label use [Unknown]
